FAERS Safety Report 7973756-9 (Version None)
Quarter: 2011Q4

REPORT INFORMATION
  Report Type: 
  Country: None (occurrence: None)
  Receive Date: 20111213
  Receipt Date: 20111208
  Transmission Date: 20120403
  Serious: Yes (Other)
  Sender: FDA-Public Use
  Company Number: PHHY2011CA107798

PATIENT
  Weight: 70 kg

DRUGS (3)
  1. ZOLEDRONOC ACID [Suspect]
     Dosage: 5 MG/100 ML, YEARLY
     Route: 042
     Dates: start: 20091130
  2. VITAMIN D [Concomitant]
     Dosage: 2000 MG, DAILY
     Dates: start: 20050101
  3. CALCIUM [Concomitant]
     Dosage: 1500 MG, UNK
     Dates: start: 20050101

REACTIONS (1)
  - FOOT FRACTURE [None]
